FAERS Safety Report 10131777 (Version 2)
Quarter: 2014Q2

REPORT INFORMATION
  Report Type: Spontaneous
  Country: US (occurrence: US)
  Receive Date: 20140428
  Receipt Date: 20140428
  Transmission Date: 20141212
  Serious: Yes (Hospitalization)
  Sender: FDA-Public Use
  Company Number: US-ACTELION-A-NJ2014-93871

PATIENT
  Age: 79 Year
  Sex: Female

DRUGS (3)
  1. OPSUMIT [Suspect]
     Indication: PULMONARY ARTERIAL HYPERTENSION
     Dosage: 10 MG, QD
     Route: 048
     Dates: start: 20140110
  2. TYVASO [Suspect]
     Dosage: 9 BREATHS 4 TIMES DAILY
     Route: 055
     Dates: start: 201401
  3. OXYGEN [Concomitant]

REACTIONS (8)
  - Cough [Unknown]
  - Malaise [Unknown]
  - No therapeutic response [Unknown]
  - Nausea [Unknown]
  - Throat irritation [Unknown]
  - Dyspnoea [Unknown]
  - Oedema [Unknown]
  - Oedema peripheral [Unknown]
